FAERS Safety Report 10361156 (Version 1)
Quarter: 2014Q3

REPORT INFORMATION
  Report Type: Spontaneous
  Country: US (occurrence: US)
  Receive Date: 20140804
  Receipt Date: 20140804
  Transmission Date: 20150326
  Serious: Yes (Other)
  Sender: FDA-Public Use
  Company Number: US-MYLANLABS-2014S1017752

PATIENT

DRUGS (5)
  1. HYDROXYCHLOROQUINE [Interacting]
     Active Substance: HYDROXYCHLOROQUINE
     Indication: OFF LABEL USE
  2. DOXYCYCLINE. [Concomitant]
     Active Substance: DOXYCYCLINE
     Indication: Q FEVER
     Dosage: 100 MG,BID
     Route: 065
  3. HYDROXYCHLOROQUINE [Suspect]
     Active Substance: HYDROXYCHLOROQUINE
     Indication: Q FEVER
     Dosage: UNK
     Route: 065
  4. RIFAMPICIN [Interacting]
     Active Substance: RIFAMPIN
     Indication: Q FEVER
     Dosage: UNK
     Route: 065
  5. CIPROFLOXACIN. [Interacting]
     Active Substance: CIPROFLOXACIN
     Dosage: 750 MG,BID
     Route: 065

REACTIONS (9)
  - Acute psychosis [Recovered/Resolved]
  - Hallucination, tactile [None]
  - Drug interaction [Recovered/Resolved]
  - Vomiting [Unknown]
  - Hallucinations, mixed [None]
  - Hypertensive emergency [None]
  - Nausea [Unknown]
  - Hypertensive crisis [None]
  - Hepatic enzyme increased [Unknown]
